FAERS Safety Report 7531720-8 (Version None)
Quarter: 2011Q2

REPORT INFORMATION
  Report Type: 
  Country: None (occurrence: None)
  Receive Date: 20110608
  Receipt Date: 20110531
  Transmission Date: 20111010
  Serious: Yes (Other)
  Sender: FDA-Public Use
  Company Number: JP-ASTELLAS-2011JP003641

PATIENT
  Sex: Male
  Weight: 71 kg

DRUGS (21)
  1. PROGRAF [Suspect]
     Indication: IMMUNOSUPPRESSION
     Dosage: 6 MG, BID
     Route: 048
     Dates: start: 20110504, end: 20110505
  2. RABEPRAZOLE SODIUM [Concomitant]
     Indication: RENAL FAILURE CHRONIC
     Dosage: 10 MG, UID/QD
     Route: 048
     Dates: start: 20110422
  3. VENOGLOBULIN [Concomitant]
     Indication: RENAL FAILURE CHRONIC
     Dosage: 5 G, UID/QD
     Route: 041
     Dates: start: 20110512, end: 20110516
  4. PROGRAF [Interacting]
     Dosage: 0.4 MG, BID
     Route: 048
     Dates: start: 20110518, end: 20110526
  5. FOSRENOL [Concomitant]
     Indication: RENAL FAILURE CHRONIC
     Dosage: 500 MG, TID
     Route: 048
     Dates: end: 20110510
  6. PREDNISOLONE [Concomitant]
     Indication: RENAL FAILURE CHRONIC
     Dosage: 50 MG, UID/QD
     Route: 041
     Dates: start: 20110504, end: 20110517
  7. HUMULIN R [Concomitant]
     Indication: RENAL FAILURE CHRONIC
     Dosage: 22 IU, UNKNOWN/D
     Route: 041
     Dates: start: 20110512, end: 20110512
  8. LANSOPRAZOLE [Concomitant]
     Indication: RENAL FAILURE CHRONIC
     Dosage: 30 MG, BID
     Route: 041
     Dates: start: 20110511, end: 20110513
  9. DOPAMINE HCL [Concomitant]
     Indication: RENAL FAILURE CHRONIC
     Dosage: 600 MG, UID/QD
     Route: 041
     Dates: start: 20110511
  10. PROGRAF [Interacting]
     Dosage: UNK
     Route: 048
     Dates: start: 20110506
  11. PREDNISOLONE [Concomitant]
     Indication: RENAL FAILURE CHRONIC
     Dosage: 30 MG, UID/QD
     Route: 048
     Dates: start: 20110511
  12. FUTHAN [Concomitant]
     Indication: RENAL FAILURE CHRONIC
     Dosage: 100 MG, UNKNOWN/D
     Route: 041
     Dates: start: 20110511, end: 20110519
  13. TACROLIMUS [Interacting]
     Indication: IMMUNOSUPPRESSION
     Dosage: 1.5 MG, UID/QD
     Route: 048
     Dates: start: 20110513, end: 20110517
  14. ALLOID G [Concomitant]
     Indication: RENAL FAILURE CHRONIC
     Dosage: 20 ML, QID
     Route: 048
     Dates: start: 20110422
  15. SIMULECT [Concomitant]
     Indication: RENAL FAILURE CHRONIC
     Dosage: 20 MG, UID/QD
     Route: 041
     Dates: start: 20110511, end: 20110515
  16. NESPO [Concomitant]
     Indication: RENAL FAILURE CHRONIC
     Dosage: 120 MG, UID/QD
     Route: 058
     Dates: start: 20110510
  17. PROGRAF [Interacting]
     Dosage: 1.25 MG, UID/QD
     Route: 041
     Dates: start: 20110511, end: 20110511
  18. PROGRAF [Interacting]
     Dosage: UNK
     Route: 041
     Dates: start: 20110512
  19. PROGRAF [Interacting]
     Dosage: 0.5 MG, BID
     Route: 048
     Dates: start: 20110511, end: 20110511
  20. AMIODARONE HYDROCHLORIDE [Interacting]
     Indication: ARRHYTHMIA
     Dosage: 100 MG, BID
     Route: 048
     Dates: start: 20110201, end: 20110518
  21. CELLCEPT [Concomitant]
     Indication: RENAL FAILURE CHRONIC
     Dosage: 750 MG, BID
     Route: 048
     Dates: start: 20110413

REACTIONS (3)
  - RENAL IMPAIRMENT [None]
  - DRUG LEVEL INCREASED [None]
  - DRUG INTERACTION [None]
